FAERS Safety Report 17930208 (Version 1)
Quarter: 2020Q2

REPORT INFORMATION
  Report Type: Report from Study
  Country: US (occurrence: US)
  Receive Date: 20200623
  Receipt Date: 20200623
  Transmission Date: 20200714
  Serious: Yes (Other)
  Sender: FDA-Public Use
  Company Number: US-TEVA-2020-US-1223514

PATIENT
  Sex: Female

DRUGS (7)
  1. AUSTEDO [Suspect]
     Active Substance: DEUTETRABENAZINE
     Dosage: 18 MILLIGRAM DAILY; WEEK 2
     Route: 048
  2. AUSTEDO [Suspect]
     Active Substance: DEUTETRABENAZINE
     Dosage: 24 MILLIGRAM DAILY; WEEK 3, CURRENT DOSE
     Route: 048
  3. AUSTEDO [Suspect]
     Active Substance: DEUTETRABENAZINE
     Indication: TARDIVE DYSKINESIA
     Route: 065
  4. VRAYLAR [Concomitant]
     Active Substance: CARIPRAZINE
  5. AUSTEDO [Suspect]
     Active Substance: DEUTETRABENAZINE
     Dosage: 12 MILLIGRAM DAILY; WEEK 1
     Route: 048
     Dates: start: 20200421
  6. AUSTEDO [Suspect]
     Active Substance: DEUTETRABENAZINE
     Dosage: 9 MILLIGRAM DAILY;
     Route: 065
     Dates: end: 202003
  7. PRENATAL VITAMIN [Concomitant]
     Active Substance: VITAMINS

REACTIONS (5)
  - Depression [Unknown]
  - Depression suicidal [Recovered/Resolved]
  - Inappropriate schedule of product administration [Unknown]
  - Crying [Unknown]
  - Drug ineffective [Unknown]
